FAERS Safety Report 14214663 (Version 3)
Quarter: 2020Q4

REPORT INFORMATION
  Report Type: Spontaneous
  Country: US (occurrence: US)
  Receive Date: 20171122
  Receipt Date: 20201027
  Transmission Date: 20210113
  Serious: Yes (Hospitalization, Other)
  Sender: FDA-Public Use
  Company Number: US-PFIZER INC-2017500224

PATIENT
  Age: 68 Year
  Sex: Female
  Weight: 70.76 kg

DRUGS (2)
  1. XELJANZ [Suspect]
     Active Substance: TOFACITINIB CITRATE
     Dosage: 5 MG, 1X/DAY
     Route: 048
  2. XELJANZ [Suspect]
     Active Substance: TOFACITINIB CITRATE
     Indication: RHEUMATOID ARTHRITIS
     Dosage: 5 MG, 2X/DAY
     Route: 048

REACTIONS (10)
  - Hip fracture [Recovering/Resolving]
  - Ankle fracture [Recovering/Resolving]
  - Face injury [Unknown]
  - Fall [Recovered/Resolved with Sequelae]
  - Off label use [Unknown]
  - Localised infection [Recovering/Resolving]
  - Head injury [Unknown]
  - Weight increased [Not Recovered/Not Resolved]
  - Pelvic fracture [Recovering/Resolving]
  - Hand fracture [Recovering/Resolving]

NARRATIVE: CASE EVENT DATE: 201709
